FAERS Safety Report 9326324 (Version 2)
Quarter: 2013Q2

REPORT INFORMATION
  Report Type: Spontaneous
  Country: US (occurrence: US)
  Receive Date: 20130604
  Receipt Date: 20130621
  Transmission Date: 20140414
  Serious: No
  Sender: FDA-Public Use
  Company Number: US-009507513-1305USA015209

PATIENT
  Age: 24 Year
  Sex: Female
  Weight: 99.32 kg

DRUGS (1)
  1. NEXPLANON [Suspect]
     Indication: CONTRACEPTION
     Dosage: UNK
     Route: 059
     Dates: start: 20130329, end: 20130529

REACTIONS (5)
  - Infection [Recovered/Resolved]
  - Injection site swelling [Not Recovered/Not Resolved]
  - Device expulsion [Recovered/Resolved]
  - Implant site discharge [Not Recovered/Not Resolved]
  - Implant site erythema [Not Recovered/Not Resolved]
